FAERS Safety Report 22012897 (Version 2)
Quarter: 2023Q1

REPORT INFORMATION
  Report Type: Report from Study
  Country: CA (occurrence: CA)
  Receive Date: 20230220
  Receipt Date: 20230317
  Transmission Date: 20230417
  Serious: Yes (Other)
  Sender: FDA-Public Use
  Company Number: CA-PFIZER INC-202300070285

PATIENT
  Age: 20 Year
  Sex: Female

DRUGS (6)
  1. SULFASALAZINE [Interacting]
     Active Substance: SULFASALAZINE
     Route: 065
  2. ACTEMRA [Interacting]
     Active Substance: TOCILIZUMAB
     Indication: Juvenile idiopathic arthritis
     Dosage: 162 MG 1 EVERY 2 WEEKS
     Route: 058
  3. XARELTO [Interacting]
     Active Substance: RIVAROXABAN
     Route: 065
  4. ENBREL [Concomitant]
     Active Substance: ETANERCEPT
  5. METHOTREXATE [Concomitant]
     Active Substance: METHOTREXATE
     Route: 048
  6. METHOTREXATE [Concomitant]
     Active Substance: METHOTREXATE
     Dosage: UNK
     Route: 037

REACTIONS (5)
  - Arthropathy [Unknown]
  - Drug interaction [Unknown]
  - Gastrointestinal disorder [Unknown]
  - Joint effusion [Unknown]
  - Pulmonary embolism [Unknown]
